FAERS Safety Report 20636080 (Version 3)
Quarter: 2025Q3

REPORT INFORMATION
  Report Type: Report from Study
  Country: US (occurrence: US)
  Receive Date: 20220325
  Receipt Date: 20250804
  Transmission Date: 20251021
  Serious: No
  Sender: TAKEDA
  Company Number: US-TAKEDA-US201934524

PATIENT
  Sex: Female
  Weight: 91 kg

DRUGS (14)
  1. HUMAN IMMUNOGLOBULIN G\HYALURONIDASE RECOMBINANT HUMAN [Suspect]
     Active Substance: HUMAN IMMUNOGLOBULIN G\HYALURONIDASE (HUMAN RECOMBINANT)
     Indication: Immunodeficiency common variable
     Dosage: 40 GRAM, Q4WEEKS
  2. HUMAN IMMUNOGLOBULIN G\HYALURONIDASE RECOMBINANT HUMAN [Suspect]
     Active Substance: HUMAN IMMUNOGLOBULIN G\HYALURONIDASE (HUMAN RECOMBINANT)
     Dosage: 40 GRAM, Q4WEEKS
     Dates: start: 20180301
  3. DIPHENHYDRAMINE [Concomitant]
     Active Substance: DIPHENHYDRAMINE
  4. EPINEPHRINE [Concomitant]
     Active Substance: EPINEPHRINE
  5. ZONISAMIDE [Concomitant]
     Active Substance: ZONISAMIDE
  6. CARAFATE [Concomitant]
     Active Substance: SUCRALFATE
  7. CYMBALTA [Concomitant]
     Active Substance: DULOXETINE HYDROCHLORIDE
  8. SINGULAIR [Concomitant]
     Active Substance: MONTELUKAST SODIUM
  9. SYNTHROID [Concomitant]
     Active Substance: LEVOTHYROXINE SODIUM
  10. XYZAL [Concomitant]
     Active Substance: LEVOCETIRIZINE DIHYDROCHLORIDE
  11. DEXILANT [Concomitant]
     Active Substance: DEXLANSOPRAZOLE
  12. DEXTROAMPHETAMINE [Concomitant]
     Active Substance: DEXTROAMPHETAMINE
  13. AMPHETAMINE [Concomitant]
     Active Substance: AMPHETAMINE
  14. DIPHENHYDRAMINE HYDROCHLORIDE [Concomitant]
     Active Substance: DIPHENHYDRAMINE HYDROCHLORIDE

REACTIONS (3)
  - Respiratory tract infection [Unknown]
  - Incorrect dose administered [Unknown]
  - Inappropriate schedule of product administration [Unknown]
